FAERS Safety Report 5616268-X (Version None)
Quarter: 2008Q1

REPORT INFORMATION
  Report Type: 
  Country: None (occurrence: None)
  Receive Date: 20080204
  Receipt Date: 20080125
  Transmission Date: 20080703
  Serious: Yes (Other)
  Sender: FDA-Public Use
  Company Number: 2008002449

PATIENT
  Age: 46 Year
  Sex: Male

DRUGS (1)
  1. VISINE EYE DROPS [Suspect]
     Indication: HORNER'S SYNDROME
     Dosage: 0.05% SEVERAL TIMES DAILY, OPHTHALMIC
     Route: 047

REACTIONS (1)
  - PUPILS UNEQUAL [None]
